FAERS Safety Report 4303104-7 (Version None)
Quarter: 2004Q1

REPORT INFORMATION
  Report Type: 
  Country: None (occurrence: None)
  Receive Date: 20040224
  Receipt Date: 20021028
  Transmission Date: 20041129
  Serious: Yes (Life-Threatening, Hospitalization)
  Sender: FDA-Public Use
  Company Number: PL-ROCHE-324285

PATIENT
  Age: 38 Year
  Sex: Female
  Weight: 69 kg

DRUGS (15)
  1. DACLIZUMAB [Suspect]
     Route: 042
     Dates: start: 20020812, end: 20020812
  2. DACLIZUMAB [Suspect]
     Route: 042
     Dates: start: 20020826, end: 20021010
  3. MYCOPHENOLATE MOFETIL [Suspect]
     Route: 048
     Dates: start: 20020812
  4. METHYLPREDNISOLONE [Suspect]
     Indication: DRUG USE FOR UNKNOWN INDICATION
     Route: 065
     Dates: start: 20021022
  5. METHYLPREDNISOLONE [Suspect]
     Route: 065
     Dates: start: 20021220, end: 20030112
  6. METHYLPREDNISOLONE [Suspect]
     Route: 065
     Dates: start: 20030113
  7. NEORAL [Suspect]
     Indication: DRUG USE FOR UNKNOWN INDICATION
     Route: 065
     Dates: start: 20021213
  8. NEORAL [Suspect]
     Route: 065
     Dates: start: 20021022
  9. FURAGIN [Suspect]
     Indication: DRUG USE FOR UNKNOWN INDICATION
     Route: 065
     Dates: start: 20021104, end: 20030113
  10. RANITYDYNA [Concomitant]
     Dates: start: 20021024
  11. ACYCLOVIR [Concomitant]
     Dates: start: 20020816
  12. COTRIMOXAZOLE [Concomitant]
     Dates: start: 20020816
  13. NYSTATINE [Concomitant]
     Dates: start: 20020816
  14. METOCLOPRAMIDE [Concomitant]
     Dates: start: 20020822
  15. ESPUMISAN [Concomitant]
     Dates: start: 20020816

REACTIONS (7)
  - ACINETOBACTER INFECTION [None]
  - ASTHENIA [None]
  - BACTERIA URINE IDENTIFIED [None]
  - FLATULENCE [None]
  - PYURIA [None]
  - URINARY TRACT INFECTION [None]
  - URINARY TRACT INFECTION PSEUDOMONAL [None]
